FAERS Safety Report 6350319-2 (Version None)
Quarter: 2009Q3

REPORT INFORMATION
  Report Type: 
  Country: None (occurrence: None)
  Receive Date: 20090911
  Receipt Date: 20090622
  Transmission Date: 20100115
  Serious: No
  Sender: FDA-Public Use
  Company Number: US-ABBOTT-07P-163-0361534-00

PATIENT
  Sex: Male
  Weight: 84.444 kg

DRUGS (9)
  1. HUMIRA [Suspect]
     Indication: RHEUMATOID ARTHRITIS
     Route: 058
     Dates: start: 20070201
  2. HUMIRA [Suspect]
     Route: 058
     Dates: start: 20060101, end: 20070101
  3. VICODIN [Concomitant]
     Indication: PAIN
     Route: 048
  4. CLONIDINE [Concomitant]
     Indication: BLOOD PRESSURE
     Route: 048
  5. GLIBENCLAMIDE [Concomitant]
     Indication: DIABETES MELLITUS
     Route: 048
  6. ISONIAZID [Concomitant]
     Indication: INFLAMMATION
     Route: 048
  7. CRESTOR [Concomitant]
     Indication: BLOOD CHOLESTEROL
     Route: 048
  8. HYDROXYCHLOROQUINE [Concomitant]
     Indication: DRUG USE FOR UNKNOWN INDICATION
     Route: 048
  9. METHOTREXATE [Concomitant]
     Indication: RHEUMATOID ARTHRITIS
     Route: 048

REACTIONS (1)
  - INCORRECT DOSE ADMINISTERED [None]
